FAERS Safety Report 17970691 (Version 1)
Quarter: 2020Q3

REPORT INFORMATION
  Report Type: Spontaneous
  Country: US (occurrence: US)
  Receive Date: 20200702
  Receipt Date: 20200702
  Transmission Date: 20201103
  Serious: No
  Sender: FDA-Public Use
  Company Number: US-009507513-2006USA005383

PATIENT
  Age: 20 Year
  Sex: Female
  Weight: 54.42 kg

DRUGS (1)
  1. NEXPLANON [Suspect]
     Active Substance: ETONOGESTREL
     Indication: CONTRACEPTION
     Dosage: 1 IMPLANT, 3 YEARS; LEFT ARM?IMPLANT
     Route: 059
     Dates: start: 20171017

REACTIONS (2)
  - Axillary pain [Not Recovered/Not Resolved]
  - Implant site pain [Not Recovered/Not Resolved]

NARRATIVE: CASE EVENT DATE: 20171017
